FAERS Safety Report 8823415 (Version 1)
Quarter: 2012Q4

REPORT INFORMATION
  Report Type: 
  Country: US (occurrence: US)
  Receive Date: 20121003
  Receipt Date: 20121003
  Transmission Date: 20130627
  Serious: No
  Sender: FDA-Public Use
  Company Number: US-009507513-1209USA009034

PATIENT
  Age: 36 Year
  Sex: Female
  Weight: 79.37 kg

DRUGS (1)
  1. IMPLANON [Suspect]
     Indication: CONTRACEPTION
     Dosage: 68 mg, per 3 year implant
     Route: 059
     Dates: start: 20090923

REACTIONS (3)
  - Menstruation irregular [Not Recovered/Not Resolved]
  - Menorrhagia [Not Recovered/Not Resolved]
  - Amenorrhoea [Not Recovered/Not Resolved]
